FAERS Safety Report 11582866 (Version 2)
Quarter: 2015Q4

REPORT INFORMATION
  Report Type: Report from Study
  Country: BR (occurrence: BR)
  Receive Date: 20151001
  Receipt Date: 20151015
  Transmission Date: 20160304
  Serious: Yes (Other)
  Sender: FDA-Public Use
  Company Number: PHHY2014BR053171

PATIENT
  Age: 72 Year
  Sex: Female
  Weight: 72 kg

DRUGS (8)
  1. ZOLPIDEM [Concomitant]
     Active Substance: ZOLPIDEM\ZOLPIDEM TARTRATE
     Dosage: 1 DF, QD
     Route: 065
     Dates: start: 2008
  2. ACLASTA [Suspect]
     Active Substance: ZOLEDRONIC ACID
     Dosage: UNK
     Route: 042
     Dates: start: 2015
  3. SERTRALINE [Concomitant]
     Active Substance: SERTRALINE HYDROCHLORIDE
     Indication: DEPRESSION
     Dosage: 2 DF, QD
     Route: 048
     Dates: start: 1998
  4. OMEPRAZOLE. [Concomitant]
     Active Substance: OMEPRAZOLE
     Indication: GASTROINTESTINAL DISORDER
     Dosage: 2 DF, QD (MANY YEARS AGO)
     Route: 048
     Dates: start: 2008
  5. ACLASTA [Suspect]
     Active Substance: ZOLEDRONIC ACID
     Dosage: 1 DF, Q12MO
     Route: 042
     Dates: start: 2012
  6. SERTRALINE [Concomitant]
     Active Substance: SERTRALINE HYDROCHLORIDE
     Indication: PANIC DISORDER
     Dosage: 2 DF, QD
     Route: 065
     Dates: start: 2008
  7. ACLASTA [Suspect]
     Active Substance: ZOLEDRONIC ACID
     Indication: OSTEOPOROSIS
     Dosage: 1 DF, Q12MO
     Route: 065
     Dates: start: 2011
  8. ZOLPIDEM [Concomitant]
     Active Substance: ZOLPIDEM\ZOLPIDEM TARTRATE
     Indication: SLEEP DISORDER
     Dosage: 1 DF, QD, IF NECESSARY
     Route: 048
     Dates: start: 1998

REACTIONS (6)
  - Labyrinthitis [Recovering/Resolving]
  - Pain [Recovered/Resolved]
  - Emotional disorder [Unknown]
  - Herpes zoster [Recovered/Resolved]
  - Blood pressure decreased [Recovering/Resolving]
  - Hypertension [Recovering/Resolving]

NARRATIVE: CASE EVENT DATE: 20140705
